FAERS Safety Report 15645626 (Version 2)
Quarter: 2018Q4

REPORT INFORMATION
  Report Type: Spontaneous
  Country: BR (occurrence: BR)
  Receive Date: 20181121
  Receipt Date: 20181206
  Transmission Date: 20190205
  Serious: Yes (Other)
  Sender: FDA-Public Use
  Company Number: BR-JNJFOC-20181125750

PATIENT

DRUGS (3)
  1. HUMAN CLOTTABLE PROTEIN/HUMAN THROMBIN [Suspect]
     Active Substance: FIBRINOGEN HUMAN\THROMBIN HUMAN
     Indication: TISSUE SEALING
     Route: 061
  2. TISSUCOL [Suspect]
     Active Substance: FIBRINOGEN HUMAN\THROMBIN HUMAN
     Indication: TISSUE SEALING
     Route: 061
  3. BERIPLAST [Suspect]
     Active Substance: FACTOR XIII CONCENTRATE (HUMAN)\FIBRINOGEN HUMAN\THROMBIN HUMAN
     Indication: TISSUE SEALING
     Route: 061

REACTIONS (9)
  - Vein disorder [Unknown]
  - Angiopathy [Unknown]
  - Off label use [Unknown]
  - Product use in unapproved indication [Unknown]
  - Drug ineffective for unapproved indication [Unknown]
  - Arterial insufficiency [Unknown]
  - Hypersensitivity [Unknown]
  - Transplant failure [Unknown]
  - Thrombosis [Unknown]
